FAERS Safety Report 18771916 (Version 1)
Quarter: 2021Q1

REPORT INFORMATION
  Report Type: Spontaneous
  Country: US (occurrence: US)
  Receive Date: 20210121
  Receipt Date: 20210121
  Transmission Date: 20210419
  Serious: No
  Sender: FDA-Public Use
  Company Number: US-PERRIGO-20US017165

PATIENT
  Sex: Male
  Weight: 64.4 kg

DRUGS (3)
  1. NICOTINE POLACRILEX [Suspect]
     Active Substance: NICOTINE
     Dosage: 1/4 TO 1/3 PIECE, PRN
     Route: 002
     Dates: end: 2020
  2. NICOTINE POLACRILEX [Suspect]
     Active Substance: NICOTINE
     Dosage: 1/4 TO 1/3 PIECE, PRN
     Route: 002
     Dates: start: 202011
  3. NICOTINE POLACRILEX [Suspect]
     Active Substance: NICOTINE
     Indication: OFF LABEL USE
     Dosage: 4 MG, PRN
     Route: 002

REACTIONS (3)
  - Feeling abnormal [Unknown]
  - Off label use [Not Recovered/Not Resolved]
  - Wrong technique in product usage process [Not Recovered/Not Resolved]
